FAERS Safety Report 16958778 (Version 2)
Quarter: 2020Q2

REPORT INFORMATION
  Report Type: Report from Study
  Country: US (occurrence: US)
  Receive Date: 20191024
  Receipt Date: 20200629
  Transmission Date: 20200713
  Serious: Yes (Hospitalization)
  Sender: FDA-Public Use
  Company Number: US-ACTELION-A-NJ2018-183677

PATIENT
  Sex: Female
  Weight: 77.1 kg

DRUGS (2)
  1. OPSUMIT [Suspect]
     Active Substance: MACITENTAN
     Indication: PULMONARY ARTERIAL HYPERTENSION
     Dosage: 10 MG, QD
     Route: 048
  2. ADCIRCA [Concomitant]
     Active Substance: TADALAFIL

REACTIONS (7)
  - Palpitations [Unknown]
  - Dyspnoea exertional [Unknown]
  - Liver disorder [Recovering/Resolving]
  - Renal disorder [Recovered/Resolved]
  - Hospitalisation [Unknown]
  - Chest pain [Unknown]
  - Dyspnoea [Unknown]
